FAERS Safety Report 5100595-9 (Version None)
Quarter: 2006Q3

REPORT INFORMATION
  Report Type: 
  Country: None (occurrence: None)
  Receive Date: 20060907
  Receipt Date: 20060907
  Transmission Date: 20061208
  Serious: Yes (Life-Threatening, Other)
  Sender: FDA-Public Use
  Company Number: None

PATIENT
  Age: 53 Year
  Sex: Male
  Weight: 83.9154 kg

DRUGS (1)
  1. ROXICODONE [Suspect]
     Indication: SPINAL DISORDER
     Dosage: 1/2 TAB 4TO6HRS PO
     Route: 048
     Dates: start: 20060601, end: 20060906

REACTIONS (5)
  - GENERAL SYMPTOM [None]
  - INADEQUATE ANALGESIA [None]
  - MALAISE [None]
  - PHARMACEUTICAL PRODUCT COUNTERFEIT [None]
  - VISUAL DISTURBANCE [None]
